FAERS Safety Report 26154252 (Version 1)
Quarter: 2025Q4

REPORT INFORMATION
  Report Type: Spontaneous
  Country: US (occurrence: US)
  Receive Date: 20251215
  Receipt Date: 20251215
  Transmission Date: 20260117
  Serious: Yes (Disabling)
  Sender: CHEPLAPHARM
  Company Number: US-CHEPLA-2025013952

PATIENT
  Sex: Male

DRUGS (1)
  1. OLANZAPINE [Suspect]
     Active Substance: OLANZAPINE

REACTIONS (7)
  - Metabolic disorder [Unknown]
  - Diabetes mellitus [Unknown]
  - Skeletal injury [Unknown]
  - Infection [Unknown]
  - Emotional distress [Unknown]
  - Socioeconomic precarity [Unknown]
  - Physical disability [Unknown]
